FAERS Safety Report 5412229-4 (Version None)
Quarter: 2007Q3

REPORT INFORMATION
  Report Type: 
  Country: None (occurrence: None)
  Receive Date: 20070713
  Receipt Date: 20070518
  Transmission Date: 20080115
  Serious: No
  Sender: FDA-Public Use
  Company Number: 2007SP001875

PATIENT
  Age: 58 Year
  Sex: Male
  Weight: 86.1834 kg

DRUGS (10)
  1. LUNESTA [Suspect]
     Indication: INSOMNIA
     Dosage: 3 MG HS ORAL ; 1.5 MG PRN ORAL ; 2 MG PRN ORAL ; 3 MG PRN ORAL
     Route: 048
     Dates: start: 20070101, end: 20070101
  2. LUNESTA [Suspect]
     Indication: INSOMNIA
     Dosage: 3 MG HS ORAL ; 1.5 MG PRN ORAL ; 2 MG PRN ORAL ; 3 MG PRN ORAL
     Route: 048
     Dates: start: 20070101, end: 20070401
  3. LUNESTA [Suspect]
     Indication: INSOMNIA
     Dosage: 3 MG HS ORAL ; 1.5 MG PRN ORAL ; 2 MG PRN ORAL ; 3 MG PRN ORAL
     Route: 048
     Dates: start: 20070401
  4. LUNESTA [Suspect]
     Indication: INSOMNIA
     Dosage: 3 MG HS ORAL ; 1.5 MG PRN ORAL ; 2 MG PRN ORAL ; 3 MG PRN ORAL
     Route: 048
     Dates: start: 20070401
  5. SINGULAIR [Concomitant]
  6. TOPROL-XL [Concomitant]
  7. SPIRONOLACTONE [Concomitant]
  8. BENICAR [Concomitant]
  9. ALLOPURINOL [Concomitant]
  10. VYTORIN [Concomitant]

REACTIONS (3)
  - DRUG INEFFECTIVE [None]
  - FATIGUE [None]
  - INSOMNIA [None]
